FAERS Safety Report 22181082 (Version 1)
Quarter: 2023Q2

REPORT INFORMATION
  Report Type: Spontaneous
  Country: US (occurrence: US)
  Receive Date: 20230406
  Receipt Date: 20230406
  Transmission Date: 20230722
  Serious: Yes (Other)
  Sender: FDA-Public Use
  Company Number: US-GLAXOSMITHKLINE-USCH2023014784

PATIENT

DRUGS (1)
  1. TUMS CHEWY BITES [Suspect]
     Active Substance: CALCIUM CARBONATE
     Indication: Product used for unknown indication
     Dosage: 2 DF
     Dates: start: 20230327

REACTIONS (11)
  - Anaphylactic reaction [Unknown]
  - Hypersensitivity [Unknown]
  - Erythema [Unknown]
  - Urticaria [Unknown]
  - Lip swelling [Unknown]
  - Swelling face [Unknown]
  - Eye swelling [Unknown]
  - Heart rate increased [Unknown]
  - Blood pressure increased [Unknown]
  - Nausea [Unknown]
  - Pharyngeal swelling [Unknown]

NARRATIVE: CASE EVENT DATE: 20230327
